FAERS Safety Report 12338692 (Version 3)
Quarter: 2016Q2

REPORT INFORMATION
  Report Type: Spontaneous
  Country: US (occurrence: US)
  Receive Date: 20160505
  Receipt Date: 20160608
  Transmission Date: 20160815
  Serious: No
  Sender: FDA-Public Use
  Company Number: US-GLAXOSMITHKLINE-US2016056543

PATIENT
  Sex: Female
  Weight: 86.17 kg

DRUGS (14)
  1. FLONASE [Concomitant]
     Active Substance: FLUTICASONE PROPIONATE
  2. PRAVASTATIN [Concomitant]
     Active Substance: PRAVASTATIN\PRAVASTATIN SODIUM
  3. LOSARTAN. [Concomitant]
     Active Substance: LOSARTAN
  4. ADVAIR DISKUS [Suspect]
     Active Substance: FLUTICASONE PROPIONATE\SALMETEROL XINAFOATE
     Indication: PRODUCT USED FOR UNKNOWN INDICATION
     Dosage: 1 PUFF(S), BID
     Route: 055
     Dates: start: 2010
  5. CLOPIDOGREL [Concomitant]
     Active Substance: CLOPIDOGREL BISULFATE
  6. GLIMEPIRIDE. [Concomitant]
     Active Substance: GLIMEPIRIDE
  7. AMLODIPINE [Concomitant]
     Active Substance: AMLODIPINE BESYLATE
  8. OMEPRAZOLE. [Concomitant]
     Active Substance: OMEPRAZOLE
  9. TOLTERODINE [Concomitant]
     Active Substance: TOLTERODINE
  10. AMITRIPTYLLIN [Concomitant]
  11. TRAMADOL. [Concomitant]
     Active Substance: TRAMADOL
  12. ATENOLOL. [Concomitant]
     Active Substance: ATENOLOL
  13. CELECOXIB. [Concomitant]
     Active Substance: CELECOXIB
  14. GABAPENTIN. [Concomitant]
     Active Substance: GABAPENTIN

REACTIONS (3)
  - Product quality issue [Unknown]
  - Foreign body [Unknown]
  - Tongue coated [Not Recovered/Not Resolved]

NARRATIVE: CASE EVENT DATE: 2016
